FAERS Safety Report 12667830 (Version 16)
Quarter: 2017Q1

REPORT INFORMATION
  Report Type: Report from Study
  Country: None (occurrence: BE)
  Receive Date: 20160819
  Receipt Date: 20170201
  Transmission Date: 20170428
  Serious: Yes (Hospitalization)
  Sender: FDA-Public Use
  Company Number: BE-ABBVIE-16K-013-1705777-00

PATIENT
  Age: 71 Year
  Sex: Male

DRUGS (16)
  1. DUODOPA [Suspect]
     Active Substance: CARBIDOPA\LEVODOPA
     Dosage: AM= 1 ML; CD= 1.4 ML/H DURING 16 HRS; ED= 0.7 ML
     Route: 050
     Dates: start: 20160818, end: 20160825
  2. DUODOPA [Suspect]
     Active Substance: CARBIDOPA\LEVODOPA
     Dosage: AM= 2 ML; CD= 1.9 ML/H DURING 16 HRS; ND= 0.5 ML/H DURING 8 HRS; ED= 0.6 ML
     Route: 050
     Dates: start: 20161024, end: 20170115
  3. RIVOTRIL [Concomitant]
     Active Substance: CLONAZEPAM
     Indication: PRODUCT USED FOR UNKNOWN INDICATION
  4. DUODOPA [Suspect]
     Active Substance: CARBIDOPA\LEVODOPA
     Indication: PARKINSON^S DISEASE
     Dosage: AM= 4 ML; CD= 1.3 ML/H DURING 16 HRS; ED= 1.5 ML
     Route: 050
     Dates: start: 20160808, end: 20160809
  5. DUODOPA [Suspect]
     Active Substance: CARBIDOPA\LEVODOPA
     Dosage: AM= 1.5 ML; CD= 2 ML/H DURING 16 HRS; ED= 1.5 ML
     Route: 050
     Dates: start: 20160809, end: 20160812
  6. DUODOPA [Suspect]
     Active Substance: CARBIDOPA\LEVODOPA
     Dosage: AM= 1.5 ML; CD= 1.5 ML/H DURING 16 HRS; ED= 0.7 ML
     Route: 050
     Dates: start: 20160816, end: 20160818
  7. DUODOPA [Suspect]
     Active Substance: CARBIDOPA\LEVODOPA
     Dosage: DOSAGE UNKNOWN DURING DAY; ND=0.5ML/H DURING 8HRS
     Route: 050
     Dates: start: 20160909, end: 20160912
  8. CRESTOR [Concomitant]
     Active Substance: ROSUVASTATIN CALCIUM
     Indication: PRODUCT USED FOR UNKNOWN INDICATION
  9. DAFLON [Concomitant]
     Active Substance: DIOSMIN\HESPERIDIN
     Indication: PRODUCT USED FOR UNKNOWN INDICATION
  10. DUODOPA [Suspect]
     Active Substance: CARBIDOPA\LEVODOPA
     Dosage: AM= 2 ML; CD= 2.1 ML/H DURING 16 HRS; ND= 0.6 ML/H DURING 8 HRS; ED= 0.6 ML
     Route: 050
     Dates: start: 20170115
  11. DUODOPA [Suspect]
     Active Substance: CARBIDOPA\LEVODOPA
     Dosage: AM= 2 ML; CD= 1.8 ML/H DURING 16 HRS; ND= 0.5 ML/H DURING 8 HRS; ED= 0.6 ML
     Route: 050
     Dates: start: 20161020, end: 20161024
  12. PANTOPRAZOL [Concomitant]
     Active Substance: PANTOPRAZOLE SODIUM
     Indication: PRODUCT USED FOR UNKNOWN INDICATION
  13. DUODOPA [Suspect]
     Active Substance: CARBIDOPA\LEVODOPA
     Dosage: AM=2ML, CD=1.6ML/HR DURING 16HRS, ED=0.5ML, ND=0.5ML/HR DURING 8HRS
     Route: 050
     Dates: start: 20160912, end: 20161020
  14. PROLOPA [Concomitant]
     Active Substance: BENSERAZIDE\LEVODOPA
     Indication: PRODUCT USED FOR UNKNOWN INDICATION
     Dosage: 4/DAY AS EMERGENCY MEDICATION, FORM STRENGTH: 200MG/50MGUNIT DOSE: 0.25 TABLET
     Route: 048
  15. DUODOPA [Suspect]
     Active Substance: CARBIDOPA\LEVODOPA
     Dosage: DOSES CONTINUOUSLY MONITORED AND ADAPTED
     Route: 050
     Dates: start: 20160812, end: 20160816
  16. DUODOPA [Suspect]
     Active Substance: CARBIDOPA\LEVODOPA
     Dosage: AM= 1 ML; CD= 1.6 ML/H DURING 16 HRS; ED= 0.5 ML
     Route: 050
     Dates: start: 20160825, end: 20160909

REACTIONS (14)
  - Urinary retention [Unknown]
  - Urinary tract infection [Unknown]
  - Salivary hypersecretion [Unknown]
  - On and off phenomenon [Unknown]
  - Dyskinesia [Not Recovered/Not Resolved]
  - Dystonia [Unknown]
  - Mobility decreased [Unknown]
  - Device alarm issue [Recovered/Resolved]
  - Freezing phenomenon [Recovering/Resolving]
  - Dyskinesia [Not Recovered/Not Resolved]
  - Stoma site erythema [Recovered/Resolved]
  - Dysstasia [Unknown]
  - Gait disturbance [Recovering/Resolving]
  - Bradykinesia [Unknown]

NARRATIVE: CASE EVENT DATE: 2016
